FAERS Safety Report 8533740-3 (Version None)
Quarter: 2012Q3

REPORT INFORMATION
  Report Type: 
  Country: None (occurrence: None)
  Receive Date: 20120724
  Receipt Date: 20120710
  Transmission Date: 20120928
  Serious: Yes (Other)
  Sender: FDA-Public Use
  Company Number: IE-MYLANLABS-2012S1013979

PATIENT
  Age: 37 Year
  Sex: Female

DRUGS (6)
  1. LAXOSE [Concomitant]
     Indication: CONSTIPATION
     Dates: start: 20120521, end: 20120525
  2. MIRENA [Concomitant]
     Indication: CONTRACEPTION
  3. RANITIDINE [Suspect]
     Indication: GASTROOESOPHAGEAL REFLUX DISEASE
     Route: 048
     Dates: start: 20120522, end: 20120605
  4. AUGMENTIN '500' [Concomitant]
     Indication: ABDOMINAL INFECTION
     Dates: start: 20120521, end: 20120526
  5. METHOTREXATE [Concomitant]
     Indication: PSORIASIS
     Dates: start: 20110819, end: 20120623
  6. FOLIC ACID [Concomitant]
     Indication: PROPHYLAXIS
     Dates: start: 20110819, end: 20120623

REACTIONS (1)
  - DYSPNOEA [None]
